FAERS Safety Report 6192767-X (Version None)
Quarter: 2009Q2

REPORT INFORMATION
  Report Type: 
  Country: None (occurrence: None)
  Receive Date: 20090514
  Receipt Date: 20090514
  Transmission Date: 20091009
  Serious: Yes (Other)
  Sender: FDA-Public Use
  Company Number: None

PATIENT
  Sex: Male
  Weight: 77.5651 kg

DRUGS (1)
  1. HEPARIN SODIUM 25,000 UNITS IN SODIUM CHLORIDE 0.45% [Suspect]
     Indication: ATRIAL FIBRILLATION
     Dosage: 10CC/HR RATE 1X 10MIN DRIP IV
     Route: 042
     Dates: start: 20090512

REACTIONS (6)
  - CHEST PAIN [None]
  - DRUG HYPERSENSITIVITY [None]
  - INFUSION RELATED REACTION [None]
  - MUSCULOSKELETAL PAIN [None]
  - PAIN IN EXTREMITY [None]
  - PALPITATIONS [None]
